FAERS Safety Report 13543459 (Version 2)
Quarter: 2017Q4

REPORT INFORMATION
  Report Type: Report from Study
  Country: None (occurrence: US)
  Receive Date: 20170515
  Receipt Date: 20171006
  Transmission Date: 20180320
  Serious: Yes (Other)
  Sender: FDA-Public Use
  Company Number: US-ABBVIE-17K-163-1899809-00

PATIENT
  Age: 43 Year
  Sex: Male

DRUGS (2)
  1. HUMIRA [Suspect]
     Active Substance: ADALIMUMAB
     Indication: PSORIASIS
     Route: 058
     Dates: start: 2017
  2. HUMIRA [Suspect]
     Active Substance: ADALIMUMAB
     Indication: CROHN^S DISEASE
     Route: 058
     Dates: start: 20160126, end: 2017

REACTIONS (11)
  - Erythema [Unknown]
  - Nasopharyngitis [Unknown]
  - Abscess [Unknown]
  - Colitis [Not Recovered/Not Resolved]
  - Peripheral swelling [Unknown]
  - Anal fistula [Recovering/Resolving]
  - Limb injury [Not Recovered/Not Resolved]
  - Anal abscess [Recovering/Resolving]
  - Fear of injection [Unknown]
  - Postoperative wound complication [Recovering/Resolving]
  - Injection site pain [Unknown]

NARRATIVE: CASE EVENT DATE: 2016
